FAERS Safety Report 18346978 (Version 1)
Quarter: 2020Q4

REPORT INFORMATION
  Report Type: Spontaneous
  Country: US (occurrence: US)
  Receive Date: 20201006
  Receipt Date: 20201006
  Transmission Date: 20210114
  Serious: Yes (Hospitalization, Other)
  Sender: FDA-Public Use
  Company Number: US-ALKEM LABORATORIES LIMITED-US-ALKEM-2020-06306

PATIENT
  Age: 54 Year
  Sex: Male

DRUGS (12)
  1. CLOPIDOGREL [Suspect]
     Active Substance: CLOPIDOGREL BISULFATE
     Indication: CATHETERISATION CARDIAC
  2. CLOPIDOGREL [Suspect]
     Active Substance: CLOPIDOGREL BISULFATE
     Indication: ACUTE MYOCARDIAL INFARCTION
  3. METOPROLOL. [Suspect]
     Active Substance: METOPROLOL
     Indication: CATHETERISATION CARDIAC
  4. METOPROLOL. [Suspect]
     Active Substance: METOPROLOL
     Indication: ACUTE MYOCARDIAL INFARCTION
  5. TICAGRELOR. [Interacting]
     Active Substance: TICAGRELOR
     Indication: STENT PLACEMENT
     Dosage: UNK
     Route: 065
  6. CLOPIDOGREL [Suspect]
     Active Substance: CLOPIDOGREL BISULFATE
     Indication: STENT PLACEMENT
     Dosage: UNK
     Route: 065
  7. METOPROLOL. [Suspect]
     Active Substance: METOPROLOL
     Indication: STENT PLACEMENT
     Dosage: UNK
     Route: 065
  8. ATORVASTATIN CALCIUM. [Suspect]
     Active Substance: ATORVASTATIN CALCIUM
     Indication: STENT PLACEMENT
     Dosage: 40 MILLIGRAM, QD
     Route: 065
  9. ATORVASTATIN CALCIUM. [Interacting]
     Active Substance: ATORVASTATIN CALCIUM
     Indication: CATHETERISATION CARDIAC
  10. ATORVASTATIN CALCIUM. [Interacting]
     Active Substance: ATORVASTATIN CALCIUM
     Indication: ACUTE MYOCARDIAL INFARCTION
  11. TICAGRELOR. [Interacting]
     Active Substance: TICAGRELOR
     Indication: CATHETERISATION CARDIAC
  12. TICAGRELOR. [Interacting]
     Active Substance: TICAGRELOR
     Indication: ACUTE MYOCARDIAL INFARCTION

REACTIONS (7)
  - Drug interaction [Unknown]
  - Muscle necrosis [Recovering/Resolving]
  - Rhabdomyolysis [Recovering/Resolving]
  - Myopathy [Recovering/Resolving]
  - Transaminases increased [Recovering/Resolving]
  - Subarachnoid haemorrhage [Unknown]
  - Haematoma [Unknown]
